FAERS Safety Report 18887606 (Version 2)
Quarter: 2021Q1

REPORT INFORMATION
  Report Type: Report from Study
  Country: None (occurrence: US)
  Receive Date: 20210212
  Receipt Date: 20210218
  Transmission Date: 20210420
  Serious: Yes (Other)
  Sender: FDA-Public Use
  Company Number: US-ABBVIE-21K-163-3728091-00

PATIENT
  Age: 56 Year
  Sex: Male
  Weight: 108.05 kg

DRUGS (4)
  1. HUMIRA [Suspect]
     Active Substance: ADALIMUMAB
     Indication: CROHN^S DISEASE
     Route: 058
     Dates: start: 20210201
  2. METHOTREXATE. [Concomitant]
     Active Substance: METHOTREXATE
     Indication: RHEUMATOID ARTHRITIS
  3. ZYRTEC [Concomitant]
     Active Substance: CETIRIZINE HYDROCHLORIDE
     Indication: NASAL CONGESTION
  4. HUMIRA [Suspect]
     Active Substance: ADALIMUMAB
     Indication: RHEUMATOID ARTHRITIS
     Route: 058
     Dates: start: 2009, end: 20201204

REACTIONS (10)
  - Intestinal obstruction [Not Recovered/Not Resolved]
  - Cardiac disorder [Unknown]
  - Crohn^s disease [Unknown]
  - COVID-19 [Recovered/Resolved]
  - Blood cholesterol increased [Not Recovered/Not Resolved]
  - Pneumonia [Recovering/Resolving]
  - Intestinal anastomosis complication [Recovered/Resolved with Sequelae]
  - Enteritis [Not Recovered/Not Resolved]
  - Diarrhoea [Not Recovered/Not Resolved]
  - Abdominal pain upper [Not Recovered/Not Resolved]

NARRATIVE: CASE EVENT DATE: 2010
